FAERS Safety Report 8722421 (Version 6)
Quarter: 2013Q1

REPORT INFORMATION
  Report Type: Report from Study
  Country: GB (occurrence: GB)
  Receive Date: 20120814
  Receipt Date: 20130219
  Transmission Date: 20140127
  Serious: Yes (Other)
  Sender: FDA-Public Use
  Company Number: GB-BAYER-2012-081864

PATIENT
  Age: 61 Year
  Sex: Female

DRUGS (2)
  1. BETAFERON [Suspect]
     Indication: MULTIPLE SCLEROSIS
     Dosage: 62.5 ?G, QOD
     Route: 058
     Dates: start: 20120808
  2. BETAFERON [Suspect]
     Indication: MULTIPLE SCLEROSIS
     Dosage: 250 ?G, QOD
     Route: 058
     Dates: start: 201208

REACTIONS (16)
  - Multiple sclerosis [None]
  - Mobility decreased [Recovered/Resolved]
  - Abasia [None]
  - Influenza like illness [None]
  - Chills [None]
  - Insomnia [None]
  - Fatigue [None]
  - Balance disorder [Not Recovered/Not Resolved]
  - Gait disturbance [None]
  - Mobility decreased [Recovering/Resolving]
  - Muscular weakness [Recovering/Resolving]
  - Mobility decreased [None]
  - Nasopharyngitis [None]
  - Back pain [None]
  - Balance disorder [None]
  - Sensation of heaviness [None]
